FAERS Safety Report 17757603 (Version 1)
Quarter: 2020Q2

REPORT INFORMATION
  Report Type: Report from Study
  Country: TW (occurrence: TW)
  Receive Date: 20200507
  Receipt Date: 20200507
  Transmission Date: 20200714
  Serious: Yes (Other)
  Sender: FDA-Public Use
  Company Number: TW-PFIZER INC-2020179299

PATIENT

DRUGS (1)
  1. INLYTA [Suspect]
     Active Substance: AXITINIB
     Indication: HEPATOCELLULAR CARCINOMA
     Dosage: 5 MG PER FLAT DOSE, TWICE DIALY
     Route: 048

REACTIONS (2)
  - Hyperbilirubinaemia [Unknown]
  - Alanine aminotransferase increased [Unknown]
